FAERS Safety Report 24607929 (Version 1)
Quarter: 2024Q4

REPORT INFORMATION
  Report Type: Spontaneous
  Country: US (occurrence: US)
  Receive Date: 20241112
  Receipt Date: 20241112
  Transmission Date: 20250115
  Serious: No
  Sender: ELI LILLY AND COMPANY
  Company Number: US-ELI_LILLY_AND_COMPANY-US202411000756

PATIENT
  Age: 42 Year
  Sex: Female

DRUGS (20)
  1. ZEPBOUND [Suspect]
     Active Substance: TIRZEPATIDE
     Indication: Hypercholesterolaemia
     Dosage: 2.5 MG, UNKNOWN
     Route: 058
     Dates: start: 202409
  2. ZEPBOUND [Suspect]
     Active Substance: TIRZEPATIDE
     Indication: Hypercholesterolaemia
     Dosage: 2.5 MG, UNKNOWN
     Route: 058
     Dates: start: 202409
  3. ZEPBOUND [Suspect]
     Active Substance: TIRZEPATIDE
     Indication: Hypercholesterolaemia
     Dosage: 2.5 MG, UNKNOWN
     Route: 058
     Dates: start: 202409
  4. ZEPBOUND [Suspect]
     Active Substance: TIRZEPATIDE
     Indication: Hypercholesterolaemia
     Dosage: 2.5 MG, UNKNOWN
     Route: 058
     Dates: start: 202409
  5. ZEPBOUND [Suspect]
     Active Substance: TIRZEPATIDE
     Indication: Hypercholesterolaemia
     Dosage: 2.5 MG, UNKNOWN
     Route: 058
     Dates: start: 202409
  6. ZEPBOUND [Suspect]
     Active Substance: TIRZEPATIDE
     Indication: Thyroid disorder
     Dosage: 2.5 MG, UNKNOWN
     Route: 058
  7. ZEPBOUND [Suspect]
     Active Substance: TIRZEPATIDE
     Indication: Thyroid disorder
     Dosage: 2.5 MG, UNKNOWN
     Route: 058
  8. ZEPBOUND [Suspect]
     Active Substance: TIRZEPATIDE
     Indication: Thyroid disorder
     Dosage: 2.5 MG, UNKNOWN
     Route: 058
  9. ZEPBOUND [Suspect]
     Active Substance: TIRZEPATIDE
     Indication: Thyroid disorder
     Dosage: 2.5 MG, UNKNOWN
     Route: 058
  10. ZEPBOUND [Suspect]
     Active Substance: TIRZEPATIDE
     Indication: Thyroid disorder
     Dosage: 2.5 MG, UNKNOWN
     Route: 058
  11. ZEPBOUND [Suspect]
     Active Substance: TIRZEPATIDE
     Indication: Weight control
  12. ZEPBOUND [Suspect]
     Active Substance: TIRZEPATIDE
     Indication: Weight control
  13. ZEPBOUND [Suspect]
     Active Substance: TIRZEPATIDE
     Indication: Weight control
  14. ZEPBOUND [Suspect]
     Active Substance: TIRZEPATIDE
     Indication: Weight control
  15. ZEPBOUND [Suspect]
     Active Substance: TIRZEPATIDE
     Indication: Weight control
  16. ZEPBOUND [Suspect]
     Active Substance: TIRZEPATIDE
     Indication: Diabetes mellitus
  17. ZEPBOUND [Suspect]
     Active Substance: TIRZEPATIDE
     Indication: Diabetes mellitus
  18. ZEPBOUND [Suspect]
     Active Substance: TIRZEPATIDE
     Indication: Diabetes mellitus
  19. ZEPBOUND [Suspect]
     Active Substance: TIRZEPATIDE
     Indication: Diabetes mellitus
  20. ZEPBOUND [Suspect]
     Active Substance: TIRZEPATIDE
     Indication: Diabetes mellitus

REACTIONS (4)
  - Wrong technique in product usage process [Unknown]
  - Injection site injury [Unknown]
  - Injection site pain [Unknown]
  - Accidental underdose [Unknown]
